FAERS Safety Report 25859935 (Version 1)
Quarter: 2025Q3

REPORT INFORMATION
  Report Type: Spontaneous
  Country: US (occurrence: US)
  Receive Date: 20250929
  Receipt Date: 20250929
  Transmission Date: 20251021
  Serious: No
  Sender: JOHNSON AND JOHNSON
  Company Number: US-JNJFOC-20250929437

PATIENT
  Sex: Male

DRUGS (3)
  1. SPRAVATO [Suspect]
     Active Substance: ESKETAMINE
     Indication: Product used for unknown indication
     Dates: start: 20220426, end: 20220504
  2. SPRAVATO [Suspect]
     Active Substance: ESKETAMINE
     Dates: start: 20220510, end: 20250909
  3. RAPIFLO [Concomitant]
     Indication: Blood pressure decreased

REACTIONS (2)
  - Therapeutic response unexpected [Unknown]
  - Back pain [Unknown]
